FAERS Safety Report 7095684-6 (Version None)
Quarter: 2010Q4

REPORT INFORMATION
  Report Type: 
  Country: None (occurrence: None)
  Receive Date: 20101111
  Receipt Date: 20101025
  Transmission Date: 20110411
  Serious: Yes (Other)
  Sender: FDA-Public Use
  Company Number: US-AMGEN-KDL429634

PATIENT

DRUGS (8)
  1. ENBREL [Suspect]
     Indication: PSORIATIC ARTHROPATHY
     Dosage: 50 MG, QWK
     Route: 058
     Dates: start: 20100712, end: 20100818
  2. ENBREL [Suspect]
     Indication: PSORIASIS
  3. METHOTREXATE [Concomitant]
     Dosage: 25 MG, UNK
     Route: 058
  4. CYMBALTA [Concomitant]
     Dosage: 90 MG, QD
     Route: 048
  5. LYRICA [Concomitant]
     Dosage: 25 MG, TID
     Route: 048
  6. DICLOFENAC SODIUM [Concomitant]
     Dosage: 75 MG, QID
     Route: 048
  7. ALLEGRA [Concomitant]
     Dosage: UNK UNK, BID
     Route: 048
  8. HYDROCODONE [Concomitant]
     Dosage: UNK UNK, PRN
     Route: 048

REACTIONS (8)
  - CHEST DISCOMFORT [None]
  - DRUG INEFFECTIVE [None]
  - DYSPNOEA [None]
  - INJECTION SITE ERYTHEMA [None]
  - INJECTION SITE SWELLING [None]
  - INJECTION SITE WARMTH [None]
  - RASH [None]
  - RASH PAPULAR [None]
